FAERS Safety Report 4551690-4 (Version None)
Quarter: 2005Q1

REPORT INFORMATION
  Report Type: 
  Country: None (occurrence: None)
  Receive Date: 20050111
  Receipt Date: 20030730
  Transmission Date: 20050727
  Serious: Yes (Hospitalization, Other)
  Sender: FDA-Public Use
  Company Number: 05GER0002

PATIENT
  Sex: Male

DRUGS (2)
  1. AGGRASTAT [Suspect]
     Indication: ACUTE CORONARY SYNDROME
     Dosage: DOSE REPORTED AS ^ACCORDING TO PHYSICIAN'S CIRCULAR^
     Dates: start: 20030601
  2. HEPARIN [Concomitant]

REACTIONS (1)
  - CEREBRAL HAEMORRHAGE [None]
